FAERS Safety Report 7494507-0 (Version None)
Quarter: 2011Q2

REPORT INFORMATION
  Report Type: 
  Country: None (occurrence: None)
  Receive Date: 20110520
  Receipt Date: 20110506
  Transmission Date: 20111010
  Serious: Yes (Hospitalization)
  Sender: FDA-Public Use
  Company Number: PHHY2011AR39285

PATIENT
  Age: 88 Year
  Sex: Female

DRUGS (1)
  1. DIOVAN [Suspect]
     Indication: BLOOD PRESSURE
     Dosage: 80 MG, UNK

REACTIONS (5)
  - HIP FRACTURE [None]
  - WEIGHT DECREASED [None]
  - VIRAL INFECTION [None]
  - FALL [None]
  - PNEUMONIA [None]
